FAERS Safety Report 12282572 (Version 2)
Quarter: 2016Q2

REPORT INFORMATION
  Report Type: Spontaneous
  Country: IT (occurrence: IT)
  Receive Date: 20160419
  Receipt Date: 20160602
  Transmission Date: 20160815
  Serious: Yes (Death)
  Sender: FDA-Public Use
  Company Number: IT-CELGENEUS-ITA-2016036248

PATIENT
  Sex: Male

DRUGS (1)
  1. POMALIDOMIDE [Suspect]
     Active Substance: POMALIDOMIDE
     Indication: PLASMA CELL MYELOMA
     Route: 048

REACTIONS (1)
  - Plasma cell myeloma [Fatal]
